FAERS Safety Report 8419009-6 (Version None)
Quarter: 2012Q2

REPORT INFORMATION
  Report Type: 
  Country: None (occurrence: None)
  Receive Date: 20120607
  Receipt Date: 20120531
  Transmission Date: 20120825
  Serious: Yes (Hospitalization)
  Sender: FDA-Public Use
  Company Number: JP-ROCHE-1044503

PATIENT
  Sex: Male
  Weight: 49 kg

DRUGS (13)
  1. TAMIFLU [Suspect]
     Indication: INFLUENZA
     Route: 048
     Dates: start: 20120212, end: 20120212
  2. ROCEPHIN [Suspect]
     Indication: PNEUMONIA
     Route: 042
     Dates: start: 20120212, end: 20120215
  3. FUTHAN [Concomitant]
     Dosage: DOSAGE IS UNCERTAIN.
     Route: 042
  4. ENALAPRIL MALEATE [Suspect]
     Route: 048
     Dates: start: 20120215, end: 20120216
  5. ACETAMINOPHEN [Concomitant]
     Dosage: DOSAGE IS UNCERTAIN.
     Route: 048
  6. TAMIFLU [Suspect]
     Route: 048
     Dates: start: 20120213, end: 20120215
  7. NITROGLYCERIN [Concomitant]
     Dosage: DOSAGE IS UNCERTAIN.
     Route: 041
  8. HEPARIN SODIUM [Concomitant]
     Dosage: DOSAGE IS UNCERTAIN.
     Route: 042
  9. NITRODERM [Concomitant]
     Dosage: DOSAGE IS UNCERTAIN.
     Route: 062
  10. TAMIFLU [Suspect]
     Route: 048
     Dates: start: 20120216, end: 20120216
  11. LASIX [Concomitant]
     Dosage: DOSAGE IS UNCERTAIN.
     Route: 042
  12. ENALAPRIL MALEATE [Suspect]
     Indication: HYPERTENSION
     Route: 048
     Dates: start: 20120212, end: 20120214
  13. AMOBAN [Concomitant]
     Indication: INSOMNIA
     Route: 048
     Dates: start: 20120212

REACTIONS (2)
  - BLOOD CREATINE PHOSPHOKINASE INCREASED [None]
  - ASPARTATE AMINOTRANSFERASE INCREASED [None]
